FAERS Safety Report 7896346-5 (Version None)
Quarter: 2011Q4

REPORT INFORMATION
  Report Type: 
  Country: None (occurrence: None)
  Receive Date: 20111106
  Receipt Date: 20110908
  Transmission Date: 20120403
  Serious: No
  Sender: FDA-Public Use
  Company Number: US-AMGEN-USASP2011042796

PATIENT
  Sex: Female
  Weight: 85.261 kg

DRUGS (3)
  1. PROPRANOLOL [Concomitant]
     Route: 048
  2. VITAMIN D [Concomitant]
     Route: 048
  3. ENBREL [Suspect]
     Indication: PSORIASIS
     Dosage: 50 MG, QWK
     Route: 058
     Dates: start: 20080214, end: 20110104

REACTIONS (2)
  - PSORIASIS [None]
  - DRUG INEFFECTIVE [None]
